FAERS Safety Report 6029792-5 (Version None)
Quarter: 2009Q1

REPORT INFORMATION
  Report Type: 
  Country: None (occurrence: None)
  Receive Date: 20090106
  Receipt Date: 20090106
  Transmission Date: 20090719
  Serious: Yes (Life-Threatening, Hospitalization, Disabling)
  Sender: FDA-Public Use
  Company Number: None

PATIENT
  Sex: Female

DRUGS (15)
  1. BYETTA [Suspect]
     Indication: TYPE 2 DIABETES MELLITUS
     Dosage: 10 MCG BID AC SQ
     Route: 058
     Dates: start: 20071114, end: 20080428
  2. METFORMIN HCL [Concomitant]
  3. LANTUS [Concomitant]
  4. NOVALOG INSULIN [Concomitant]
  5. FLUCINOLIDE [Concomitant]
  6. ACYCLOVIR [Concomitant]
  7. FELODIPINE [Concomitant]
  8. ATENOLOL [Concomitant]
  9. SIMVASTATIN [Concomitant]
  10. FEXOFENADINE [Concomitant]
  11. FAMOTIDINE [Concomitant]
  12. ESTRADIOL [Concomitant]
  13. HYDROXYZINE [Concomitant]
  14. . [Concomitant]
  15. . [Concomitant]

REACTIONS (3)
  - GLOMERULONEPHRITIS PROLIFERATIVE [None]
  - KIDNEY ENLARGEMENT [None]
  - STREPTOCOCCAL INFECTION [None]
